FAERS Safety Report 24325052 (Version 2)
Quarter: 2024Q4

REPORT INFORMATION
  Report Type: Spontaneous
  Country: US (occurrence: US)
  Receive Date: 20240916
  Receipt Date: 20241101
  Transmission Date: 20250114
  Serious: No
  Sender: JOHNSON AND JOHNSON
  Company Number: US-VIIV HEALTHCARE LIMITED-US2024112472

PATIENT
  Sex: Male

DRUGS (2)
  1. RILPIVIRINE [Suspect]
     Active Substance: RILPIVIRINE
     Indication: HIV carrier
     Dosage: UNK, SINGLE-DOSE VIAL OF 600-MG/900 MG
     Route: 030
     Dates: start: 20240701
  2. CABOTEGRAVIR [Suspect]
     Active Substance: CABOTEGRAVIR
     Indication: HIV carrier
     Dosage: UNK, SINGLE-DOSE VIAL OF 600-MG/900 MG
     Route: 065
     Dates: start: 20240701

REACTIONS (1)
  - Inappropriate schedule of product administration [Unknown]
